FAERS Safety Report 11061342 (Version 1)
Quarter: 2015Q2

REPORT INFORMATION
  Report Type: Spontaneous
  Country: US (occurrence: US)
  Receive Date: 20150424
  Receipt Date: 20150424
  Transmission Date: 20150821
  Serious: No
  Sender: FDA-Public Use
  Company Number: US-BAYER-2015-167766

PATIENT
  Age: 71 Year
  Sex: Female
  Weight: 68.27 kg

DRUGS (3)
  1. CENTRUM SILVER [Concomitant]
     Active Substance: VITAMINS
     Dosage: UNK
  2. ALEVE [Suspect]
     Active Substance: NAPROXEN SODIUM
     Indication: ARTHRALGIA
     Dosage: 2 DF, PRN
     Route: 048
     Dates: start: 2014
  3. ALEVE [Suspect]
     Active Substance: NAPROXEN SODIUM
     Indication: MYALGIA

REACTIONS (1)
  - Expired product administered [Unknown]

NARRATIVE: CASE EVENT DATE: 20150417
